FAERS Safety Report 4855768-7 (Version None)
Quarter: 2005Q4

REPORT INFORMATION
  Report Type: 
  Country: None (occurrence: None)
  Receive Date: 20051216
  Receipt Date: 20051005
  Transmission Date: 20060501
  Serious: Yes (Hospitalization)
  Sender: FDA-Public Use
  Company Number: US-MERCK-0510USA04054

PATIENT
  Age: 72 Year
  Sex: Male
  Weight: 136 kg

DRUGS (7)
  1. VIOXX [Suspect]
     Indication: ARTHRITIS
     Route: 048
     Dates: start: 19990101, end: 20030101
  2. METFORMIN [Concomitant]
     Route: 065
  3. SYNTHROID [Concomitant]
     Route: 065
  4. CARTIA (DILTIAZEM HYDROCHLORIDE) [Concomitant]
     Route: 065
  5. HYZAAR [Concomitant]
     Route: 065
  6. ASPIRIN [Concomitant]
     Route: 065
  7. PERIOSTAT [Concomitant]
     Route: 065

REACTIONS (3)
  - CARDIAC FAILURE CONGESTIVE [None]
  - CARDIAC VALVE DISEASE [None]
  - LUNG NEOPLASM MALIGNANT [None]
